FAERS Safety Report 12454375 (Version 4)
Quarter: 2017Q1

REPORT INFORMATION
  Report Type: Report from Study
  Country: US (occurrence: US)
  Receive Date: 20160610
  Receipt Date: 20170221
  Transmission Date: 20170428
  Serious: Yes (Hospitalization, Other)
  Sender: FDA-Public Use
  Company Number: US-ROCHE-1769064

PATIENT
  Age: 76 Year
  Sex: Male
  Weight: 93.5 kg

DRUGS (34)
  1. MIRAPEX [Concomitant]
     Active Substance: PRAMIPEXOLE DIHYDROCHLORIDE
  2. METFORMIN [Concomitant]
     Active Substance: METFORMIN HYDROCHLORIDE
     Route: 048
  3. LOVASTATIN. [Concomitant]
     Active Substance: LOVASTATIN
  4. RESTORIL [Concomitant]
     Active Substance: TEMAZEPAM
  5. AUGMENTIN [Concomitant]
     Active Substance: AMOXICILLIN\CLAVULANATE POTASSIUM
     Route: 048
  6. TRESIBA [Concomitant]
     Active Substance: INSULIN DEGLUDEC
  7. NEURONTIN [Concomitant]
     Active Substance: GABAPENTIN
     Route: 048
  8. CHLORPHENIRAMINE. [Concomitant]
     Active Substance: CHLORPHENIRAMINE
     Route: 048
  9. NEURONTIN [Concomitant]
     Active Substance: GABAPENTIN
     Route: 048
  10. CLARITIN (UNITED STATES) [Concomitant]
     Route: 048
  11. OBINUTUZUMAB [Suspect]
     Active Substance: OBINUTUZUMAB
     Indication: NON-HODGKIN^S LYMPHOMA UNSPECIFIED HISTOLOGY INDOLENT
     Dosage: ON DAY 1, 8, AND 15 OF CYCLE ONE AND ON DAY 1 OF EACH SUBSEQUENT CYCLE UP TO 6 CYCLES
     Route: 042
  12. TAMBOCOR [Concomitant]
     Active Substance: FLECAINIDE ACETATE
     Route: 048
  13. LEVAQUIN [Concomitant]
     Active Substance: LEVOFLOXACIN
     Route: 048
  14. MAG-OX [Concomitant]
     Active Substance: MAGNESIUM OXIDE
     Route: 048
  15. ZOSTRIX (UNITED STATES) [Concomitant]
     Route: 061
  16. TYLENOL #3 (UNITED STATES) [Concomitant]
  17. ELIQUIS [Concomitant]
     Active Substance: APIXABAN
     Route: 048
  18. PROTONIX [Concomitant]
     Active Substance: PANTOPRAZOLE SODIUM
  19. HEPARIN SODIUM. [Concomitant]
     Active Substance: HEPARIN SODIUM
     Route: 065
  20. MICRO-K [Concomitant]
     Active Substance: POTASSIUM CHLORIDE
  21. COENZYME Q10 COMPLEX (UNK INGREDIENTS) [Concomitant]
     Route: 048
  22. LENALIDOMIDE [Suspect]
     Active Substance: LENALIDOMIDE
     Indication: NON-HODGKIN^S LYMPHOMA UNSPECIFIED HISTOLOGY INDOLENT
     Dosage: IN THE MORNING EACH DAY ON DAYS 2 - 22, FOLLOWED BY 6 DAYS OF NO THERAPY OF EACH 28-DAY CYCLE
     Route: 048
  23. TAMBOCOR [Concomitant]
     Active Substance: FLECAINIDE ACETATE
     Route: 048
  24. HUMULIN NOS [Concomitant]
     Active Substance: INSULIN HUMAN
     Dosage: 100 UNITS/ML
     Route: 065
  25. LOPRESSOR [Concomitant]
     Active Substance: METOPROLOL TARTRATE
     Route: 048
  26. PRILOSEC [Concomitant]
     Active Substance: OMEPRAZOLE MAGNESIUM
  27. ZYLOPRIM [Concomitant]
     Active Substance: ALLOPURINOL
  28. MEVACOR [Concomitant]
     Active Substance: LOVASTATIN
  29. HUMALOG [Concomitant]
     Active Substance: INSULIN LISPRO
     Dosage: AS NEEDED.
     Route: 058
     Dates: start: 20160514
  30. ALLOPURINOL. [Concomitant]
     Active Substance: ALLOPURINOL
     Dosage: LAST DOSE ON 21/OCT/2015
     Route: 048
  31. ULTRAM [Concomitant]
     Active Substance: TRAMADOL HYDROCHLORIDE
  32. ZOFRAN [Concomitant]
     Active Substance: ONDANSETRON HYDROCHLORIDE
  33. ALPHA LIPOIC ACID [Concomitant]
     Active Substance: .ALPHA.-LIPOIC ACID
     Route: 048
  34. ELIQUIS [Concomitant]
     Active Substance: APIXABAN
     Route: 048

REACTIONS (9)
  - Implant site inflammation [Unknown]
  - Atrial fibrillation [Recovering/Resolving]
  - Pyrexia [Unknown]
  - Lung infection [Unknown]
  - Cardiac disorder [Unknown]
  - Infection [Unknown]
  - Thrombocytopenia [Unknown]
  - Implant site erythema [Unknown]
  - Acute myeloid leukaemia [Unknown]

NARRATIVE: CASE EVENT DATE: 20160511
